FAERS Safety Report 4914940-8 (Version None)
Quarter: 2006Q1

REPORT INFORMATION
  Report Type: 
  Country: None (occurrence: None)
  Receive Date: 20060215
  Receipt Date: 20060215
  Transmission Date: 20060701
  Serious: Yes (Hospitalization)
  Sender: FDA-Public Use
  Company Number: None

PATIENT
  Sex: Male
  Weight: 136.0791 kg

DRUGS (5)
  1. CARBOPLATIN [Suspect]
     Indication: NEOPLASM MALIGNANT
     Dosage: IV
     Route: 042
     Dates: start: 20051212
  2. COUMADIN [Concomitant]
  3. COREG [Concomitant]
  4. LASIX [Concomitant]
  5. SINGULAIR [Concomitant]

REACTIONS (1)
  - ADVERSE DRUG REACTION [None]
